FAERS Safety Report 15166079 (Version 1)
Quarter: 2018Q3

REPORT INFORMATION
  Report Type: Spontaneous
  Country: US (occurrence: US)
  Receive Date: 20180719
  Receipt Date: 20180719
  Transmission Date: 20181010
  Serious: No
  Sender: FDA-Public Use
  Company Number: US-SA-2018SA164231

PATIENT
  Age: 97 Year
  Sex: Female

DRUGS (1)
  1. PLAVIX [Suspect]
     Active Substance: CLOPIDOGREL BISULFATE
     Indication: CARDIAC PACEMAKER INSERTION
     Dosage: UNK, QD
     Route: 048
     Dates: start: 2007

REACTIONS (1)
  - Pruritus [Unknown]
